FAERS Safety Report 10525486 (Version 1)
Quarter: 2014Q4

REPORT INFORMATION
  Report Type: Spontaneous
  Country: GB (occurrence: None)
  Receive Date: 20141015
  Receipt Date: 20141015
  Transmission Date: 20150528
  Serious: Yes (Other)
  Sender: FDA-Public Use
  Company Number: 2014PRN00028

PATIENT
  Age: 19 Year
  Sex: Female

DRUGS (2)
  1. LACOSAMIDE [Concomitant]
     Active Substance: LACOSAMIDE
  2. LEVETIRACTAM [Suspect]
     Active Substance: LEVETIRACETAM
     Indication: PARTIAL SEIZURES

REACTIONS (1)
  - Angioedema [None]
